FAERS Safety Report 19592660 (Version 1)
Quarter: 2021Q3

REPORT INFORMATION
  Report Type: Spontaneous
  Country: US (occurrence: US)
  Receive Date: 20210722
  Receipt Date: 20210722
  Transmission Date: 20211014
  Serious: Yes (Death)
  Sender: FDA-Public Use
  Company Number: US-ROCHE-2875035

PATIENT
  Age: 74 Year
  Sex: Male

DRUGS (15)
  1. FISH OIL [Concomitant]
     Active Substance: FISH OIL
  2. MELOXICAM. [Concomitant]
     Active Substance: MELOXICAM
  3. TYLENOL [Concomitant]
     Active Substance: ACETAMINOPHEN
  4. ESBRIET [Suspect]
     Active Substance: PIRFENIDONE
     Indication: IDIOPATHIC PULMONARY FIBROSIS
     Route: 048
  5. ALBUTEROL SULFATE. [Concomitant]
     Active Substance: ALBUTEROL SULFATE
  6. MAGNESIUM [Concomitant]
     Active Substance: MAGNESIUM
  7. TAMSULOSIN HYDROCHLORIDE. [Concomitant]
     Active Substance: TAMSULOSIN HYDROCHLORIDE
  8. LEVOTHYROXIN [Concomitant]
     Active Substance: LEVOTHYROXINE
  9. METOPROLOL TARTRATE. [Concomitant]
     Active Substance: METOPROLOL TARTRATE
  10. ASPIRIN. [Concomitant]
     Active Substance: ASPIRIN
  11. ATORVASTIN [Concomitant]
     Active Substance: ATORVASTATIN
  12. LOSARTAN POTASSIUM. [Concomitant]
     Active Substance: LOSARTAN POTASSIUM
  13. COQ10 EXCEL [Concomitant]
  14. GLUCOSAMINE [Concomitant]
     Active Substance: GLUCOSAMINE
  15. VITAMIN D [ERGOCALCIFEROL] [Concomitant]
     Active Substance: ERGOCALCIFEROL
     Dosage: 50000 UNI

REACTIONS (1)
  - Death [Fatal]

NARRATIVE: CASE EVENT DATE: 20210715
